FAERS Safety Report 24307165 (Version 1)
Quarter: 2024Q3

REPORT INFORMATION
  Report Type: Spontaneous
  Country: US (occurrence: US)
  Receive Date: 20240911
  Receipt Date: 20240911
  Transmission Date: 20241017
  Serious: Yes (Other)
  Sender: DR REDDYS
  Company Number: US-DRL-USA-SPO/USA/24/0012944

PATIENT
  Age: 9 Day
  Sex: Female

DRUGS (3)
  1. CYCLOPHOSPHAMIDE [Suspect]
     Active Substance: CYCLOPHOSPHAMIDE
     Indication: Rhabdomyosarcoma
     Dosage: 40 MG/M2
  2. VINCRISTINE [Suspect]
     Active Substance: VINCRISTINE
     Indication: Rhabdomyosarcoma
     Dosage: 0.025 MG/KG
  3. DACTINOMYCIN [Suspect]
     Active Substance: DACTINOMYCIN
     Indication: Rhabdomyosarcoma
     Dosage: 0.025 MG/KG

REACTIONS (6)
  - Pulmonary nocardiosis [Unknown]
  - Neutrophil count decreased [Unknown]
  - Fatigue [Unknown]
  - Irritability [Unknown]
  - Dehydration [Unknown]
  - Product use in unapproved indication [Unknown]
